FAERS Safety Report 5195261-8 (Version None)
Quarter: 2006Q4

REPORT INFORMATION
  Report Type: 
  Country: None (occurrence: None)
  Receive Date: 20061229
  Receipt Date: 20061101
  Transmission Date: 20070319
  Serious: Yes (Hospitalization)
  Sender: FDA-Public Use
  Company Number: JP-PFIZER INC-2006139370

PATIENT
  Sex: Male

DRUGS (8)
  1. ESTRACYT [Suspect]
     Indication: PROSTATE CANCER
     Dosage: DAILY DOSE:560MG
     Route: 048
     Dates: start: 20061010, end: 20061022
  2. AMLODIPINE [Concomitant]
  3. VALSARTAN [Concomitant]
     Dates: start: 20001201
  4. TOCOPHEROL CONCENTRATE CAP [Concomitant]
     Dates: start: 20020801
  5. ATORVASTATIN CALCIUM [Concomitant]
     Dates: start: 20030201
  6. THEOPHYLLINE [Concomitant]
     Dates: start: 20051201
  7. LANSOPRAZOLE [Concomitant]
     Dates: start: 20050201
  8. DEXAMETHASONE [Concomitant]

REACTIONS (1)
  - INTERSTITIAL LUNG DISEASE [None]
